FAERS Safety Report 8867328 (Version 1)
Quarter: 2012Q4

REPORT INFORMATION
  Report Type: 
  Country: US (occurrence: US)
  Receive Date: 20121025
  Receipt Date: 20121025
  Transmission Date: 20130627
  Serious: No
  Sender: FDA-Public Use
  Company Number: US-AMGEN-USASP2012015970

PATIENT
  Age: 39 Year
  Sex: Female

DRUGS (1)
  1. ENBREL [Suspect]
     Indication: PSORIASIS
     Dosage: 50 mg, UNK
     Dates: start: 20080101

REACTIONS (3)
  - Bronchitis [Unknown]
  - Influenza [Unknown]
  - Psoriasis [Not Recovered/Not Resolved]
